FAERS Safety Report 14602830 (Version 3)
Quarter: 2018Q2

REPORT INFORMATION
  Report Type: Report from Study
  Country: MX (occurrence: MX)
  Receive Date: 20180306
  Receipt Date: 20180406
  Transmission Date: 20180711
  Serious: Yes (Other)
  Sender: FDA-Public Use
  Company Number: PHHY2018MX017353

PATIENT
  Sex: Female
  Weight: 65 kg

DRUGS (4)
  1. CO-DIOVAN [Suspect]
     Active Substance: HYDROCHLOROTHIAZIDE\VALSARTAN
     Indication: HYPERTENSION
     Dosage: 1 DF (HYDROCHLOROTHIAZIDE 12.5 MG, VALSARTAN 80 MG), QD
     Route: 048
  2. CONTROLIP (FENOFIBRATE) [Concomitant]
     Indication: BLOOD CHOLESTEROL INCREASED
  3. CONTROLIP (FENOFIBRATE) [Concomitant]
     Indication: BLOOD TRIGLYCERIDES
     Dosage: 3 DF, QW (APPROXIMATELY 5  YEARS AGO)
     Route: 048
  4. CONTROLIP (FENOFIBRATE) [Concomitant]
     Indication: LIPIDS ABNORMAL

REACTIONS (7)
  - Toothache [Unknown]
  - Hypoacusis [Not Recovered/Not Resolved]
  - Deafness [Not Recovered/Not Resolved]
  - Reaction to preservatives [Unknown]
  - Rhinalgia [Unknown]
  - Dry eye [Not Recovered/Not Resolved]
  - Appendix disorder [Unknown]
